FAERS Safety Report 9181376 (Version 2)
Quarter: 2013Q2

REPORT INFORMATION
  Report Type: Spontaneous
  Country: US (occurrence: US)
  Receive Date: 20130322
  Receipt Date: 20130403
  Transmission Date: 20140414
  Serious: Yes (Hospitalization)
  Sender: FDA-Public Use
  Company Number: US-AMGEN-USASP2013018030

PATIENT
  Age: 61 Year
  Sex: Female
  Weight: 84 kg

DRUGS (3)
  1. PROLIA [Suspect]
     Indication: OSTEOPOROSIS
     Dosage: UNK UNK, Q6MO
  2. PROLIA [Suspect]
     Indication: RHEUMATOID ARTHRITIS
  3. ESTROGEN [Concomitant]

REACTIONS (7)
  - Muscle abscess [Recovering/Resolving]
  - Staphylococcal abscess [Recovering/Resolving]
  - Sepsis [Recovering/Resolving]
  - Surgery [Unknown]
  - Weight decreased [Unknown]
  - Malaise [Unknown]
  - Malnutrition [Unknown]
